FAERS Safety Report 9494374 (Version 1)
Quarter: 2013Q3

REPORT INFORMATION
  Report Type: Spontaneous
  Country: US (occurrence: None)
  Receive Date: 20130828
  Receipt Date: 20130828
  Transmission Date: 20140515
  Serious: Yes (Other)
  Sender: FDA-Public Use
  Company Number: ADR-2013-01489

PATIENT
  Sex: Female

DRUGS (2)
  1. BACLOFEN [Suspect]
     Indication: PAIN
     Dosage: LOW 1 OR 2
  2. DILAUDID (HYDROMORPHONE) [Suspect]
     Indication: PAIN
     Dosage: BMG/DAY

REACTIONS (6)
  - Device related infection [None]
  - Staphylococcal infection [None]
  - Device ineffective [None]
  - Breakthrough pain [None]
  - Activities of daily living impaired [None]
  - Depression [None]
